FAERS Safety Report 4301796-X (Version None)
Quarter: 2004Q1

REPORT INFORMATION
  Report Type: 
  Country: None (occurrence: None)
  Receive Date: 20040126
  Receipt Date: 20031006
  Transmission Date: 20041129
  Serious: No
  Sender: FDA-Public Use
  Company Number: USA031049181

PATIENT
  Age: 13 Year
  Sex: Female
  Weight: 48 kg

DRUGS (2)
  1. STRATTERA [Suspect]
     Indication: ATTENTION DEFICIT/HYPERACTIVITY DISORDER
     Dosage: 60 MG/1 IN THE MORNING
     Dates: start: 20030515
  2. IMIPRAMINE [Concomitant]

REACTIONS (7)
  - ABNORMAL BEHAVIOUR [None]
  - BINGE EATING [None]
  - DEREALISATION [None]
  - HYPERPHAGIA [None]
  - IMPULSIVE BEHAVIOUR [None]
  - INSOMNIA [None]
  - MENTAL IMPAIRMENT [None]
